FAERS Safety Report 5742664-6 (Version None)
Quarter: 2008Q2

REPORT INFORMATION
  Report Type: 
  Country: None (occurrence: None)
  Receive Date: 20080515
  Receipt Date: 20080515
  Transmission Date: 20081010
  Serious: Yes (Other)
  Sender: FDA-Public Use
  Company Number: None

PATIENT
  Sex: Female
  Weight: 95.2554 kg

DRUGS (1)
  1. SINGULAIR [Suspect]
     Dosage: 10MG 1 DAILY

REACTIONS (2)
  - ANXIETY [None]
  - ILL-DEFINED DISORDER [None]
